FAERS Safety Report 8797567 (Version 1)
Quarter: 2012Q4

REPORT INFORMATION
  Report Type: Report from Study
  Country: HU (occurrence: HU)
  Receive Date: 20120919
  Receipt Date: 20120919
  Transmission Date: 20130627
  Serious: Yes (Hospitalization)
  Sender: FDA-Public Use
  Company Number: HU-ROCHE-1126034

PATIENT

DRUGS (2)
  1. XELODA [Suspect]
     Indication: COLORECTAL CANCER
     Route: 048
     Dates: start: 20090122, end: 200903
  2. XELODA [Suspect]
     Indication: METASTASES TO LUNG

REACTIONS (1)
  - Prostatic operation [Recovered/Resolved]
